FAERS Safety Report 21353329 (Version 1)
Quarter: 2022Q3

REPORT INFORMATION
  Report Type: Spontaneous
  Country: CN (occurrence: CN)
  Receive Date: 20220920
  Receipt Date: 20220920
  Transmission Date: 20221027
  Serious: No
  Sender: FDA-Public Use
  Company Number: CN-ALKEM LABORATORIES LIMITED-CN-ALKEM-2022-04935

PATIENT
  Age: 57 Year
  Sex: Female

DRUGS (11)
  1. CLOZAPINE [Suspect]
     Active Substance: CLOZAPINE
     Indication: Dermatitis
     Dosage: 350 MILLIGRAM PER DAY (DAY 1-23)
     Route: 065
  2. CLOZAPINE [Suspect]
     Active Substance: CLOZAPINE
     Indication: Schizoaffective disorder
     Dosage: 375 MILLIGRAM PER DAY (DAY 26-42)
     Route: 065
  3. CLOZAPINE [Suspect]
     Active Substance: CLOZAPINE
     Dosage: 275 MILLIGRAM PER DAY (DAY 43 AND 44)
     Route: 065
  4. CLOZAPINE [Suspect]
     Active Substance: CLOZAPINE
     Dosage: 200 MILLIGRAM PER DAY (DAY 46-85)
     Route: 065
  5. METOPROLOL SUCCINATE [Suspect]
     Active Substance: METOPROLOL SUCCINATE
     Indication: Palpitations
     Dosage: UNK
     Route: 065
  6. METOPROLOL SUCCINATE [Suspect]
     Active Substance: METOPROLOL SUCCINATE
     Indication: Tachycardia
  7. HALOPERIDOL [Suspect]
     Active Substance: HALOPERIDOL
     Indication: Mental disorder
     Dosage: UNK
     Route: 065
  8. LORAZEPAM [Suspect]
     Active Substance: LORAZEPAM
     Indication: Mental disorder
     Dosage: UNK
     Route: 065
  9. SULPIRIDE [Suspect]
     Active Substance: SULPIRIDE
     Indication: Mental disorder
     Dosage: UNK
     Route: 065
  10. POTASSIUM CHLORIDE [Suspect]
     Active Substance: POTASSIUM CHLORIDE
     Indication: Hypokalaemia
     Dosage: UNK
     Route: 065
  11. FERROUS SUCCINATE [Suspect]
     Active Substance: FERROUS SUCCINATE
     Indication: Iron deficiency anaemia
     Dosage: UNK
     Route: 065

REACTIONS (2)
  - Antipsychotic drug level increased [Unknown]
  - Drug interaction [Unknown]
